FAERS Safety Report 5206162-0 (Version None)
Quarter: 2006Q4

REPORT INFORMATION
  Report Type: 
  Country: None (occurrence: None)
  Receive Date: 20061026
  Receipt Date: 20060922
  Transmission Date: 20070319
  Serious: No
  Sender: FDA-Public Use
  Company Number: 2006114715

PATIENT
  Sex: Male

DRUGS (6)
  1. LYRICA [Suspect]
     Indication: NEUROPATHY
     Dosage: 150 MG (50 MG, 3 IN 1 D)
     Dates: start: 20060101
  2. METFORMIN HCL [Concomitant]
  3. ATENOLOL [Concomitant]
  4. LISNINOPRIL [Concomitant]
  5. LOVASTATIN [Concomitant]
  6. ALLOPURINOL SODIUM [Concomitant]

REACTIONS (3)
  - FEELING ABNORMAL [None]
  - MUSCLE SPASMS [None]
  - NEUROPATHY PERIPHERAL [None]
